APPROVED DRUG PRODUCT: OCL
Active Ingredient: POLYETHYLENE GLYCOL 3350; POTASSIUM CHLORIDE; SODIUM BICARBONATE; SODIUM CHLORIDE; SODIUM SULFATE
Strength: 6GM/100ML;75MG/100ML;168MG/100ML;146MG/100ML;1.29GM/100ML
Dosage Form/Route: SOLUTION;ORAL
Application: N019284 | Product #001
Applicant: HOSPIRA INC
Approved: Apr 30, 1986 | RLD: No | RS: No | Type: DISCN